FAERS Safety Report 4301847-2 (Version None)
Quarter: 2004Q1

REPORT INFORMATION
  Report Type: 
  Country: None (occurrence: None)
  Receive Date: 20040223
  Receipt Date: 20030218
  Transmission Date: 20041129
  Serious: Yes (Other)
  Sender: FDA-Public Use
  Company Number: AU-GLAXOSMITHKLINE-B0293200A

PATIENT
  Sex: Male
  Weight: 82 kg

DRUGS (4)
  1. SERETIDE [Suspect]
     Indication: ASTHMA
     Dosage: 2PUFF PER DAY
     Route: 055
     Dates: start: 20020701, end: 20030301
  2. FLIXOTIDE [Suspect]
     Indication: ASTHMA
     Dosage: 1000MCG PER DAY
     Route: 055
     Dates: start: 20020801, end: 20030220
  3. OMEPRAZOLE [Concomitant]
     Indication: GASTROOESOPHAGEAL REFLUX DISEASE
     Dosage: 40MG PER DAY
     Route: 048
  4. SERTRALINE HCL [Concomitant]
     Indication: DEPRESSION
     Dosage: 100MG PER DAY
     Route: 048

REACTIONS (5)
  - COUGH [None]
  - HOARSENESS [None]
  - PHARYNGITIS STREPTOCOCCAL [None]
  - PHARYNGOLARYNGEAL PAIN [None]
  - THROAT IRRITATION [None]
